FAERS Safety Report 25968836 (Version 1)
Quarter: 2025Q4

REPORT INFORMATION
  Report Type: Spontaneous
  Country: EU (occurrence: EU)
  Receive Date: 20251028
  Receipt Date: 20251028
  Transmission Date: 20260117
  Serious: Yes (Hospitalization)
  Sender: AUROBINDO
  Company Number: EU-AFSSAPS-ST2025001112

PATIENT
  Age: 55 Year
  Sex: Female

DRUGS (2)
  1. LIDOCAINE [Suspect]
     Active Substance: LIDOCAINE
     Indication: Echocardiogram
     Dosage: 15 DOSAGE FORM, 1 TOTAL
     Route: 049
     Dates: start: 20250806, end: 20250806
  2. LIDOCAINE [Suspect]
     Active Substance: LIDOCAINE
     Dosage: 1 DOSAGE FORM, 1 TOTAL
     Route: 002
     Dates: start: 20250806, end: 20250806

REACTIONS (5)
  - Asthenia [Recovered/Resolved]
  - Disorientation [Recovered/Resolved]
  - Myoclonus [Recovered/Resolved]
  - Hypotonia [Recovered/Resolved]
  - Overdose [Recovered/Resolved]

NARRATIVE: CASE EVENT DATE: 20250806
